FAERS Safety Report 7699384-0 (Version None)
Quarter: 2011Q3

REPORT INFORMATION
  Report Type: 
  Country: None (occurrence: None)
  Receive Date: 20110819
  Receipt Date: 20110812
  Transmission Date: 20111222
  Serious: Yes (Other)
  Sender: FDA-Public Use
  Company Number: US-BAYER-2011-072529

PATIENT
  Age: 46 Year
  Sex: Female

DRUGS (1)
  1. YAZ [Suspect]
     Indication: PRODUCT USED FOR UNKNOWN INDICATION
     Dosage: UNK
     Dates: start: 20090201, end: 20090801

REACTIONS (7)
  - INJURY [None]
  - PAIN [None]
  - ANXIETY [None]
  - ANHEDONIA [None]
  - FEAR [None]
  - DEEP VEIN THROMBOSIS [None]
  - PSYCHIATRIC SYMPTOM [None]
